FAERS Safety Report 4977700-8 (Version None)
Quarter: 2006Q2

REPORT INFORMATION
  Report Type: 
  Country: None (occurrence: None)
  Receive Date: 20060420
  Receipt Date: 20060109
  Transmission Date: 20061013
  Serious: No
  Sender: FDA-Public Use
  Company Number: US-GLAXOSMITHKLINE-A0588341A

PATIENT
  Age: 69 Year
  Sex: Male

DRUGS (2)
  1. LITHIUM CARBONATE [Suspect]
     Dosage: 450MG PER DAY
     Route: 048
  2. SINEQUAN [Concomitant]

REACTIONS (1)
  - DIZZINESS [None]
